FAERS Safety Report 11282758 (Version 2)
Quarter: 2015Q3

REPORT INFORMATION
  Report Type: Spontaneous
  Country: US (occurrence: None)
  Receive Date: 20150716
  Receipt Date: 20150804
  Transmission Date: 20151125
  Serious: Yes (Hospitalization)
  Sender: FDA-Public Use
  Company Number: US-002166

PATIENT
  Age: 43 Year
  Sex: Male

DRUGS (2)
  1. SOLUTIONS FOR PARENTEAL NUTRITION [Concomitant]
  2. GATTEX [Suspect]
     Active Substance: TEDUGLUTIDE\WATER
     Indication: SHORT-BOWEL SYNDROME
     Dosage: DF
     Route: 058
     Dates: start: 20150619, end: 20150627

REACTIONS (8)
  - Nausea [None]
  - Headache [None]
  - Body temperature increased [None]
  - Influenza like illness [None]
  - Abdominal pain [None]
  - Vomiting [None]
  - Skin reaction [None]
  - Device related infection [None]

NARRATIVE: CASE EVENT DATE: 201506
